FAERS Safety Report 5030514-5 (Version None)
Quarter: 2006Q2

REPORT INFORMATION
  Report Type: 
  Country: None (occurrence: None)
  Receive Date: 20060614
  Receipt Date: 20060531
  Transmission Date: 20061013
  Serious: Yes (Hospitalization)
  Sender: FDA-Public Use
  Company Number: 29333

PATIENT
  Age: 42 Year
  Sex: Female

DRUGS (1)
  1. ZIDOVAL               (METRONIDAZOLE) [Suspect]
     Indication: VAGINITIS BACTERIAL
     Dosage: 1 APPLICATORFUL (1 APPLICATORFUL, 1 IN 1 DAY(S))
     Route: 067
     Dates: start: 20060307, end: 20060307

REACTIONS (4)
  - APPLICATION SITE IRRITATION [None]
  - DYSPNOEA [None]
  - PARAESTHESIA ORAL [None]
  - PHARYNGEAL OEDEMA [None]
